FAERS Safety Report 18882661 (Version 1)
Quarter: 2021Q1

REPORT INFORMATION
  Report Type: Spontaneous
  Country: US (occurrence: US)
  Receive Date: 20210212
  Receipt Date: 20210212
  Transmission Date: 20210420
  Serious: No
  Sender: FDA-Public Use
  Company Number: US-AUROBINDO-AUR-APL-2020-058632

PATIENT
  Age: 13 Year
  Sex: Male
  Weight: 56.67 kg

DRUGS (4)
  1. ZIPRASIDONE HYDROCHLORIDE CAPSULES 20 MG [Suspect]
     Active Substance: ZIPRASIDONE HYDROCHLORIDE
     Indication: ATTENTION DEFICIT HYPERACTIVITY DISORDER
     Dosage: 20 MILLIGRAM, ONCE A DAY (FOR 01 WEEK)
     Route: 065
     Dates: start: 20201111
  2. VYVANSE [Concomitant]
     Active Substance: LISDEXAMFETAMINE DIMESYLATE
     Indication: PRODUCT USED FOR UNKNOWN INDICATION
     Dosage: UNK
     Route: 065
  3. ADDERALL [Concomitant]
     Active Substance: AMPHETAMINE ASPARTATE\AMPHETAMINE SULFATE\DEXTROAMPHETAMINE SACCHARATE\DEXTROAMPHETAMINE SULFATE
     Indication: PRODUCT USED FOR UNKNOWN INDICATION
     Dosage: UNK
     Route: 065
  4. ZIPRASIDONE HYDROCHLORIDE CAPSULES 20 MG [Suspect]
     Active Substance: ZIPRASIDONE HYDROCHLORIDE
     Indication: AUTISM SPECTRUM DISORDER
     Dosage: 20 MILLIGRAM, TWO TIMES A DAY WITH FOOD
     Route: 065
     Dates: start: 20201118, end: 20201120

REACTIONS (4)
  - Inappropriate schedule of product administration [Unknown]
  - Swollen tongue [Not Recovered/Not Resolved]
  - Dyspnoea [Recovered/Resolved]
  - Paraesthesia oral [Not Recovered/Not Resolved]

NARRATIVE: CASE EVENT DATE: 20201111
